FAERS Safety Report 8996305 (Version 2)
Quarter: 2013Q2

REPORT INFORMATION
  Report Type: Spontaneous
  Country: CA (occurrence: CA)
  Receive Date: 20130103
  Receipt Date: 20130524
  Transmission Date: 20140414
  Serious: Yes (Other)
  Sender: FDA-Public Use
  Company Number: CA-ELI_LILLY_AND_COMPANY-CA201301000254

PATIENT
  Sex: Female
  Weight: 68 kg

DRUGS (11)
  1. FORTEO [Suspect]
     Indication: OSTEOPOROSIS
     Dosage: 20 UG, QD
     Route: 058
     Dates: start: 20111121, end: 20121108
  2. CORTEF [Concomitant]
     Dosage: 10 MG, UNKNOWN
  3. CORTEF [Concomitant]
     Dosage: 5 MG, UNKNOWN
  4. METHOTREXATE [Concomitant]
     Dosage: UNK
  5. PARIET [Concomitant]
  6. SYNTHROID [Concomitant]
     Dosage: 0.05 MG, QD
  7. FOLIC ACID [Concomitant]
  8. EFFEXOR [Concomitant]
  9. VITAMIN D [Concomitant]
     Dosage: 1000 IU, QD
  10. CALCIUM [Concomitant]
     Dosage: 300 MG, BID
  11. NASONEX [Concomitant]
     Dosage: UNK, PRN

REACTIONS (1)
  - Parkinson^s disease [Not Recovered/Not Resolved]
